FAERS Safety Report 4474063-1 (Version None)
Quarter: 2004Q4

REPORT INFORMATION
  Report Type: 
  Country: None (occurrence: None)
  Receive Date: 20041008
  Receipt Date: 20040924
  Transmission Date: 20050328
  Serious: Yes (Death)
  Sender: FDA-Public Use
  Company Number: A0527246A

PATIENT
  Sex: Male

DRUGS (1)
  1. NICODERM CQ [Suspect]
     Indication: EX-SMOKER
     Dosage: TRANSDERMAL
     Route: 062

REACTIONS (2)
  - CIRCULATORY COLLAPSE [None]
  - MYOCARDIAL INFARCTION [None]
